FAERS Safety Report 10615022 (Version 4)
Quarter: 2015Q1

REPORT INFORMATION
  Report Type: Report from Study
  Country: PL (occurrence: PL)
  Receive Date: 20141201
  Receipt Date: 20150203
  Transmission Date: 20150720
  Serious: Yes (Life-Threatening, Hospitalization)
  Sender: FDA-Public Use
  Company Number: PL-ROCHE-627599

PATIENT
  Age: 57 Year
  Sex: Female

DRUGS (28)
  1. DOXORUBICIN [Suspect]
     Active Substance: DOXORUBICIN
     Indication: LYMPHOMA
     Route: 042
     Dates: start: 20090310
  2. VINCRISTINE [Suspect]
     Active Substance: VINCRISTINE
     Route: 042
     Dates: start: 20090517
  3. PERFALGAN [Concomitant]
     Active Substance: ACETAMINOPHEN
     Route: 065
  4. VINCRISTINE [Suspect]
     Active Substance: VINCRISTINE
     Indication: LYMPHOMA
     Route: 042
     Dates: start: 20090310
  5. DETRALEX [Concomitant]
     Active Substance: DIOSMIN\HESPERIDIN
     Route: 065
  6. GRANOCYTE [Concomitant]
     Active Substance: LENOGRASTIM
     Route: 065
  7. MORPHINE SULFATE. [Concomitant]
     Active Substance: MORPHINE SULFATE
     Route: 065
  8. NEULASTA [Concomitant]
     Active Substance: PEGFILGRASTIM
     Route: 065
     Dates: start: 20090511
  9. RITUXIMAB [Suspect]
     Active Substance: RITUXIMAB
     Indication: LYMPHOMA
     Route: 042
     Dates: start: 20090310
  10. CYCLOPHOSPHAMIDE. [Suspect]
     Active Substance: CYCLOPHOSPHAMIDE
     Indication: LYMPHOCYTIC LYMPHOMA
     Route: 042
     Dates: start: 20090507
  11. DOXORUBICIN [Suspect]
     Active Substance: DOXORUBICIN
     Indication: LYMPHOCYTIC LYMPHOMA
     Route: 042
     Dates: start: 20090507
  12. PREDNISONE. [Concomitant]
     Active Substance: PREDNISONE
     Route: 065
     Dates: start: 20090310, end: 20090314
  13. FRAXIPARINA [Concomitant]
     Active Substance: NADROPARIN CALCIUM
     Route: 065
  14. KETONAL (POLAND) [Concomitant]
     Route: 065
     Dates: start: 20090304, end: 20090328
  15. FLAMINAL [Concomitant]
     Active Substance: SODIUM ALGINATE
     Route: 065
  16. MILURIT [Concomitant]
     Active Substance: ALLOPURINOL
     Route: 065
  17. POLPRAZOL [Concomitant]
     Active Substance: OMEPRAZOLE
     Route: 065
  18. CYCLOPHOSPHAMIDE. [Suspect]
     Active Substance: CYCLOPHOSPHAMIDE
     Indication: LYMPHOMA
     Route: 042
     Dates: start: 20090310
  19. CYCLOPHOSPHAMIDE. [Suspect]
     Active Substance: CYCLOPHOSPHAMIDE
     Route: 042
     Dates: start: 20090517
  20. VINCRISTINE [Suspect]
     Active Substance: VINCRISTINE
     Indication: LYMPHOCYTIC LYMPHOMA
     Route: 042
     Dates: start: 20090507
  21. DETRALEX [Concomitant]
     Active Substance: DIOSMIN\HESPERIDIN
     Route: 065
  22. HEVIRAN [Concomitant]
     Active Substance: ACYCLOVIR
     Route: 065
  23. DOXORUBICIN [Suspect]
     Active Substance: DOXORUBICIN
     Route: 042
     Dates: start: 20090517
  24. MIXTARD HUMAN 70/30 [Concomitant]
     Active Substance: INSULIN HUMAN
     Route: 065
  25. FLUCONAZOLE. [Concomitant]
     Active Substance: FLUCONAZOLE
     Route: 065
  26. MILURIT [Concomitant]
     Active Substance: ALLOPURINOL
     Route: 065
     Dates: start: 20090310, end: 20090322
  27. MIXTARD HUMAN 70/30 [Concomitant]
     Active Substance: INSULIN HUMAN
     Dosage: DRUG: INSULINA MIXTARD 30
     Route: 065
  28. FLAMINAL [Concomitant]
     Active Substance: SODIUM ALGINATE
     Route: 065

REACTIONS (3)
  - Anaemia [Recovered/Resolved]
  - Febrile neutropenia [Recovered/Resolved]
  - Skin necrosis [Not Recovered/Not Resolved]

NARRATIVE: CASE EVENT DATE: 20090319
